FAERS Safety Report 9192349 (Version 1)
Quarter: 2013Q1

REPORT INFORMATION
  Report Type: Spontaneous
  Country: US (occurrence: None)
  Receive Date: 20130326
  Receipt Date: 20130326
  Transmission Date: 20140127
  Serious: Yes (Congenital Anomaly)
  Sender: FDA-Public Use
  Company Number: None

PATIENT
  Age: 0 Day
  Sex: Male
  Weight: 3.45 kg

DRUGS (1)
  1. LITHIUM CARBONATE [Suspect]

REACTIONS (3)
  - Pulmonary valve stenosis congenital [None]
  - Atrial septal defect [None]
  - Maternal drugs affecting foetus [None]
